FAERS Safety Report 11061154 (Version 2)
Quarter: 2015Q2

REPORT INFORMATION
  Report Type: Spontaneous
  Country: CH (occurrence: CH)
  Receive Date: 20150424
  Receipt Date: 20150521
  Transmission Date: 20150821
  Serious: Yes (Hospitalization, Other)
  Sender: FDA-Public Use
  Company Number: CH-BRISTOL-MYERS SQUIBB COMPANY-BMS-2015-017703

PATIENT
  Age: 46 Year
  Sex: Female

DRUGS (1)
  1. YERVOY [Suspect]
     Active Substance: IPILIMUMAB
     Indication: METASTATIC MALIGNANT MELANOMA
     Dosage: 3 MG/KG, UNK
     Route: 065
     Dates: start: 20141128, end: 20150309

REACTIONS (5)
  - Meningitis aseptic [Not Recovered/Not Resolved]
  - Deafness [Unknown]
  - Hypophysitis [Unknown]
  - Lung infection [Unknown]
  - Cerebellar syndrome [Unknown]

NARRATIVE: CASE EVENT DATE: 20150303
